FAERS Safety Report 17351308 (Version 3)
Quarter: 2020Q1

REPORT INFORMATION
  Report Type: Spontaneous
  Country: RU (occurrence: RU)
  Receive Date: 20200130
  Receipt Date: 20200209
  Transmission Date: 20200409
  Serious: Yes (Death, Life-Threatening, Hospitalization, Disabling)
  Sender: FDA-Public Use
  Company Number: RU-B.I. PHARMACEUTICALS,INC./RIDGEFIELD-2020-BI-004904

PATIENT
  Age: 71 Year
  Sex: Male
  Weight: 115 kg

DRUGS (4)
  1. INSULIN [Concomitant]
     Active Substance: INSULIN NOS
     Indication: TYPE 2 DIABETES MELLITUS
     Route: 058
     Dates: end: 20200127
  2. PRADAXA [Suspect]
     Active Substance: DABIGATRAN ETEXILATE MESYLATE
     Indication: ATRIAL FIBRILLATION
     Route: 048
     Dates: end: 20200127
  3. ACTILYSE [Suspect]
     Active Substance: ALTEPLASE
     Indication: ISCHAEMIC STROKE
     Route: 042
     Dates: start: 20200127, end: 20200127
  4. DIGOXIN. [Concomitant]
     Active Substance: DIGOXIN
     Indication: TACHYCARDIA PAROXYSMAL
     Route: 048
     Dates: end: 20200127

REACTIONS (4)
  - Ischaemic stroke [Fatal]
  - Vascular encephalopathy [Fatal]
  - Cerebral haematoma [Fatal]
  - Haemorrhagic transformation stroke [Fatal]

NARRATIVE: CASE EVENT DATE: 20200127
